FAERS Safety Report 10042338 (Version 1)
Quarter: 2014Q1

REPORT INFORMATION
  Report Type: Spontaneous
  Country: US (occurrence: US)
  Receive Date: 20140327
  Receipt Date: 20140327
  Transmission Date: 20141002
  Serious: No
  Sender: FDA-Public Use
  Company Number: US-UPSHER-SMITH LABORATORIES, INC.-13003410

PATIENT
  Age: 73 Year
  Sex: Male

DRUGS (3)
  1. PROPRANOLOL HCL [Suspect]
     Indication: MIGRAINE PROPHYLAXIS
     Dosage: 60 MG, QD
     Route: 048
     Dates: start: 201309
  2. FLUOXETINE [Concomitant]
     Dosage: UNK
  3. PRAVASTATIN [Concomitant]
     Dosage: UNK

REACTIONS (1)
  - Drug ineffective [Recovered/Resolved]
